FAERS Safety Report 13451571 (Version 2)
Quarter: 2018Q1

REPORT INFORMATION
  Report Type: Spontaneous
  Country: PL (occurrence: PL)
  Receive Date: 20170418
  Receipt Date: 20180207
  Transmission Date: 20180508
  Serious: Yes (Death, Other)
  Sender: FDA-Public Use
  Company Number: PL-AUROBINDO-AUR-APL-2017-32596

PATIENT
  Age: 67 Year
  Sex: Male

DRUGS (33)
  1. INSULIN [Concomitant]
     Active Substance: INSULIN NOS
     Route: 065
  2. PAPAVERINE [Concomitant]
     Active Substance: PAPAVERINE
     Route: 065
  3. VALPROIC ACID. [Concomitant]
     Active Substance: VALPROIC ACID
     Indication: EPILEPSY
     Dosage: 500 MG, TWO TIMES A DAY
     Route: 065
  4. CIPROFLOXACIN. [Concomitant]
     Active Substance: CIPROFLOXACIN
     Route: 048
     Dates: start: 201206
  5. DEXAMETHASONE. [Concomitant]
     Active Substance: DEXAMETHASONE
     Indication: PRODUCT USED FOR UNKNOWN INDICATION
     Dosage: 4 MG, UNK
     Route: 058
  6. MORPHINE [Suspect]
     Active Substance: MORPHINE
     Dosage: 5 MG, UNK
     Route: 048
     Dates: start: 20120621, end: 20120621
  7. TRAMADOL. [Suspect]
     Active Substance: TRAMADOL
     Dosage: 50?75 MG IN DROPS () ; AS NECESSARY
     Route: 048
  8. TRAMADOL. [Suspect]
     Active Substance: TRAMADOL
     Dosage: EVERY 6?8 HOURS
     Route: 048
  9. DEXAMETHASONE. [Concomitant]
     Active Substance: DEXAMETHASONE
     Route: 058
  10. TRAMADOL. [Suspect]
     Active Substance: TRAMADOL
     Indication: PAIN
     Dosage: 50 MG, EVERY 6?8 HOURS
     Route: 048
  11. MORPHINE [Suspect]
     Active Substance: MORPHINE
     Dosage: 0.5 ML OF SOLUTION ; AS NECESSARY
     Route: 048
     Dates: start: 20120615
  12. CODEINE [Concomitant]
     Active Substance: CODEINE
     Dosage: ()
  13. MORPHINE [Suspect]
     Active Substance: MORPHINE
     Indication: PAIN
     Dosage: ATTEMPTS TO START MORPHINE AT INTERVAL OF 3-4 DAYS
     Route: 065
     Dates: start: 2012, end: 2012
  14. MORPHINE [Suspect]
     Active Substance: MORPHINE
     Dosage: ADMINISTERED EVERY 4 HOURS
     Route: 058
     Dates: start: 20120817
  15. MORPHINE [Suspect]
     Active Substance: MORPHINE
     Dosage: AS NECESSARY
     Route: 058
     Dates: start: 201208
  16. INSULIN [Concomitant]
     Active Substance: INSULIN NOS
     Dosage: ()
  17. CODEINE [Concomitant]
     Active Substance: CODEINE
     Indication: ANALGESIC THERAPY
     Dosage: UNK
     Route: 065
  18. TRIMETHOPRIM. [Concomitant]
     Active Substance: TRIMETHOPRIM
     Indication: MORGANELLA INFECTION
     Dosage: 5 ML, UNK
     Route: 048
     Dates: start: 20120621, end: 20120621
  19. TRAMADOL. [Suspect]
     Active Substance: TRAMADOL
     Dosage: 400 MG, CONTROLLED RELEASE FORM
     Route: 048
     Dates: end: 20120807
  20. TRAMADOL. [Suspect]
     Active Substance: TRAMADOL
     Dosage: LARGER DOZE THAN INITIALLY ()
     Route: 048
  21. PAPAVERINE [Concomitant]
     Active Substance: PAPAVERINE
     Indication: ANALGESIC THERAPY
     Dosage: UNK
     Route: 065
  22. METAMIZOLE [Concomitant]
     Active Substance: METAMIZOLE
     Dosage: ()
  23. CIPROFLOXACIN. [Concomitant]
     Active Substance: CIPROFLOXACIN
     Indication: MORGANELLA INFECTION
     Dosage: 500 MG, TWO TIMES A DAY
     Route: 048
  24. AKTIL                              /00852501/ [Concomitant]
     Active Substance: AMOXICILLIN\CLAVULANIC ACID
     Indication: PRODUCT USED FOR UNKNOWN INDICATION
     Dosage: 1 G, TWO TIMES A DAY
     Route: 048
  25. AKTIL                              /00852501/ [Concomitant]
     Active Substance: AMOXICILLIN\CLAVULANIC ACID
     Route: 048
  26. AMOXICILLIN/CLAVULANIC ACID [Concomitant]
     Active Substance: AMOXICILLIN\CLAVULANIC ACID
     Indication: PRODUCT USED FOR UNKNOWN INDICATION
     Route: 048
  27. TRAMADOL. [Suspect]
     Active Substance: TRAMADOL
     Dosage: CONTROLLED RELEASE FORM
     Route: 048
     Dates: end: 20120807
  28. MORPHINE [Suspect]
     Active Substance: MORPHINE
     Dosage: 5 MG, EVERY FOUR HOUR
     Route: 048
     Dates: start: 20120621
  29. PAPAVERINE [Concomitant]
     Active Substance: PAPAVERINE
     Dosage: ()
  30. METAMIZOLE [Concomitant]
     Active Substance: METAMIZOLE
     Indication: ANALGESIC THERAPY
     Dosage: UNK
     Route: 065
  31. TRAMADOL. [Suspect]
     Active Substance: TRAMADOL
     Dosage: LARGER DOZE THAN INITIALLY
     Route: 048
  32. TRAMADOL. [Suspect]
     Active Substance: TRAMADOL
     Indication: PAIN
     Dosage: ADMINISTERED EVERY 4 HOURS
     Route: 058
     Dates: start: 20120817
  33. INSULIN [Concomitant]
     Active Substance: INSULIN NOS
     Indication: TYPE 2 DIABETES MELLITUS
     Route: 065

REACTIONS (2)
  - Chills [Recovered/Resolved]
  - Hyperthermia [Recovered/Resolved]
